FAERS Safety Report 19252202 (Version 2)
Quarter: 2021Q2

REPORT INFORMATION
  Report Type: Other
  Country: US (occurrence: US)
  Receive Date: 20210513
  Receipt Date: 20210602
  Transmission Date: 20210717
  Serious: Yes (Hospitalization)
  Sender: FDA-Public Use
  Company Number: US-ROCHE-2806994

PATIENT
  Age: 55 Year
  Sex: Male
  Weight: 97 kg

DRUGS (27)
  1. OXYGEN. [Concomitant]
     Active Substance: OXYGEN
  2. MELATONIN [Concomitant]
     Active Substance: MELATONIN
  3. VALTREX [Concomitant]
     Active Substance: VALACYCLOVIR HYDROCHLORIDE
  4. EPINEPHRINE. [Concomitant]
     Active Substance: EPINEPHRINE
     Route: 030
  5. NACL [Concomitant]
     Active Substance: SODIUM CHLORIDE
     Dosage: 1?10 ML
  6. ATIVAN [Concomitant]
     Active Substance: LORAZEPAM
  7. CATHFLO ACTIVASE [Suspect]
     Active Substance: ALTEPLASE
     Indication: MANTLE CELL LYMPHOMA
     Route: 065
  8. SOLU?MEDROL [Concomitant]
     Active Substance: METHYLPREDNISOLONE SODIUM SUCCINATE
     Route: 042
  9. RITUXAN [Suspect]
     Active Substance: RITUXIMAB
     Indication: MANTLE CELL LYMPHOMA
     Route: 042
     Dates: start: 20210216, end: 20210316
  10. ZOFRAN [Concomitant]
     Active Substance: ONDANSETRON HYDROCHLORIDE
     Route: 042
  11. BENADRYL [Concomitant]
     Active Substance: DIPHENHYDRAMINE HYDROCHLORIDE
     Route: 042
  12. NORVASC [Concomitant]
     Active Substance: AMLODIPINE BESYLATE
  13. LIDODERM [Concomitant]
     Active Substance: LIDOCAINE
  14. COMPAZINE [Concomitant]
     Active Substance: PROCHLORPERAZINE MALEATE
  15. COMPAZINE [Concomitant]
     Active Substance: PROCHLORPERAZINE MALEATE
  16. FOLVITE [Concomitant]
     Active Substance: FOLIC ACID
  17. MAGNESIUM SULFATE. [Concomitant]
     Active Substance: MAGNESIUM SULFATE
     Dosage: IN 50ML BOLUS
  18. ZYPREXA [Concomitant]
     Active Substance: OLANZAPINE
  19. POTASSIUM CHLORIDE. [Concomitant]
     Active Substance: POTASSIUM CHLORIDE
     Dosage: IN 270 ML BOLUS
  20. HEPARIN LOCK FLUSH [Concomitant]
     Active Substance: HEPARIN SODIUM
     Dosage: 300 UNIT
  21. PEPCID [Concomitant]
     Active Substance: FAMOTIDINE
     Route: 042
  22. NACL [Concomitant]
     Active Substance: SODIUM CHLORIDE
  23. ATARAX [Concomitant]
     Active Substance: HYDROXYZINE HYDROCHLORIDE
  24. XYLOCAINE [Concomitant]
     Active Substance: LIDOCAINE HYDROCHLORIDE
  25. DRISDOL [Concomitant]
     Active Substance: ERGOCALCIFEROL
  26. ROXICODONE [Concomitant]
     Active Substance: OXYCODONE HYDROCHLORIDE
  27. BACTRIM DS [Concomitant]
     Active Substance: SULFAMETHOXAZOLE\TRIMETHOPRIM
     Dosage: 800?160 MG

REACTIONS (11)
  - Off label use [Unknown]
  - Hypotension [Recovered/Resolved]
  - Drug hypersensitivity [Unknown]
  - Retching [Unknown]
  - Sinus tachycardia [Unknown]
  - Hyperhidrosis [Recovered/Resolved]
  - Tachycardia [Unknown]
  - Anxiety [Unknown]
  - Swelling [Unknown]
  - Pyrexia [Recovered/Resolved]
  - Wheezing [Recovered/Resolved]

NARRATIVE: CASE EVENT DATE: 20210216
